FAERS Safety Report 16475584 (Version 1)
Quarter: 2019Q2

REPORT INFORMATION
  Report Type: Report from Study
  Country: ES (occurrence: ES)
  Receive Date: 20190625
  Receipt Date: 20190625
  Transmission Date: 20190711
  Serious: Yes (Hospitalization)
  Sender: FDA-Public Use
  Company Number: ES-PURDUE PHARMA-GBR-2019-0067614

PATIENT
  Age: 69 Year
  Sex: Female

DRUGS (4)
  1. PREGABALIN. [Interacting]
     Active Substance: PREGABALIN
     Indication: PRODUCT USED FOR UNKNOWN INDICATION
     Dosage: 75 MG, Q12H
     Route: 065
     Dates: start: 20170222, end: 20170306
  2. DIAZEPAM. [Interacting]
     Active Substance: DIAZEPAM
     Indication: PRODUCT USED FOR UNKNOWN INDICATION
     Dosage: 5 MG, UNK
     Route: 065
     Dates: start: 20170222, end: 20170306
  3. TAPENTADOL [Interacting]
     Active Substance: TAPENTADOL
     Indication: PRODUCT USED FOR UNKNOWN INDICATION
     Dosage: 100 MG, Q12H
     Route: 065
     Dates: start: 20170222, end: 20170306
  4. BUPRENORPHINE. [Suspect]
     Active Substance: BUPRENORPHINE
     Indication: INJURY
     Dosage: UNK
     Route: 065
     Dates: start: 20170222, end: 20170306

REACTIONS (3)
  - Drug interaction [Unknown]
  - Bradyphrenia [Recovered/Resolved]
  - Disorientation [Recovered/Resolved]

NARRATIVE: CASE EVENT DATE: 20170302
